FAERS Safety Report 8329929-9 (Version None)
Quarter: 2012Q2

REPORT INFORMATION
  Report Type: 
  Country: None (occurrence: None)
  Receive Date: 20120502
  Receipt Date: 20120502
  Transmission Date: 20120825
  Serious: Yes (Other)
  Sender: FDA-Public Use
  Company Number: CN-JNJFOC-20110200019

PATIENT
  Sex: Female

DRUGS (4)
  1. VALPROATE SODIUM [Concomitant]
     Indication: PRODUCT USED FOR UNKNOWN INDICATION
     Dosage: ONE AND HALF TABLETS THREE TIMES A DAY
     Route: 048
  2. TOPAMAX [Suspect]
     Dosage: 25 MG ONCE A DAY OR TWICE A DAY
     Route: 048
     Dates: start: 20010128
  3. TOPAMAX [Suspect]
     Indication: EPILEPSY
     Route: 048
     Dates: end: 20110128
  4. NITRAZEPAM [Concomitant]
     Indication: PRODUCT USED FOR UNKNOWN INDICATION
     Dosage: ONE TABLET TWICE A DAY
     Route: 048

REACTIONS (3)
  - FOLLICULITIS [None]
  - THROMBOSIS [None]
  - HAEMATURIA [None]
